FAERS Safety Report 18376541 (Version 1)
Quarter: 2020Q4

REPORT INFORMATION
  Report Type: Spontaneous
  Country: FR (occurrence: FR)
  Receive Date: 20201013
  Receipt Date: 20201013
  Transmission Date: 20210114
  Serious: Yes (Hospitalization)
  Sender: FDA-Public Use
  Company Number: FR-TEVA-2020-FR-1837031

PATIENT
  Age: 18 Year
  Sex: Male

DRUGS (2)
  1. VANCOMYCINE [Suspect]
     Active Substance: VANCOMYCIN
     Indication: INFECTION
     Dosage: 2.5 GRAM
     Route: 042
     Dates: start: 20200820, end: 20200831
  2. TAZOCILLINE 4 G/500 MG, POUDRE POUR SOLUTION POUR PERFUSION [Suspect]
     Active Substance: PIPERACILLIN SODIUM\TAZOBACTAM SODIUM
     Indication: INFECTION
     Dosage: 12 GRAM
     Route: 065
     Dates: start: 20200820, end: 20200911

REACTIONS (2)
  - Acute kidney injury [Recovering/Resolving]
  - Rash [Recovering/Resolving]

NARRATIVE: CASE EVENT DATE: 20200831
